FAERS Safety Report 21674624 (Version 4)
Quarter: 2023Q2

REPORT INFORMATION
  Report Type: Spontaneous
  Country: US (occurrence: US)
  Receive Date: 20221202
  Receipt Date: 20230606
  Transmission Date: 20230722
  Serious: No
  Sender: FDA-Public Use
  Company Number: US-SA-SAC20221127000017

PATIENT
  Age: 62 Year
  Sex: Female

DRUGS (2)
  1. FABRAZYME [Suspect]
     Active Substance: AGALSIDASE BETA
     Indication: Fabry^s disease
     Dosage: 75 MG, QOW
     Route: 042
     Dates: start: 20191202
  2. FABRAZYME [Suspect]
     Active Substance: AGALSIDASE BETA
     Dosage: 75 MG, QOW
     Route: 042

REACTIONS (6)
  - Blood pressure abnormal [Unknown]
  - Renal hypertension [Recovering/Resolving]
  - Feeling abnormal [Unknown]
  - Condition aggravated [Unknown]
  - Pain [Unknown]
  - Blood pressure increased [Recovered/Resolved]
